FAERS Safety Report 23777931 (Version 2)
Quarter: 2024Q2

REPORT INFORMATION
  Report Type: Spontaneous
  Country: US (occurrence: US)
  Receive Date: 20240424
  Receipt Date: 20240602
  Transmission Date: 20240715
  Serious: No
  Sender: FDA-Public Use
  Company Number: US-AstraZeneca-CH-00610296AM

PATIENT
  Sex: Female

DRUGS (1)
  1. STRENSIQ [Suspect]
     Active Substance: ASFOTASE ALFA
     Indication: Hypophosphatasia
     Dosage: 3 MILLIGRAM/KILOGRAM, TIW
     Route: 058

REACTIONS (3)
  - Loss of personal independence in daily activities [Unknown]
  - Myalgia [Unknown]
  - Injection site reaction [Unknown]

NARRATIVE: CASE EVENT DATE: 20240404
